FAERS Safety Report 6021479-8 (Version None)
Quarter: 2008Q4

REPORT INFORMATION
  Report Type: 
  Country: None (occurrence: None)
  Receive Date: 20081229
  Receipt Date: 20081217
  Transmission Date: 20090506
  Serious: Yes (Other)
  Sender: FDA-Public Use
  Company Number: NL-PFIZER INC-2008046665

PATIENT

DRUGS (2)
  1. LYRICA [Suspect]
     Indication: SYRINGOMYELIA
     Route: 048
     Dates: start: 20070401
  2. BACLOFEN [Concomitant]

REACTIONS (2)
  - PEMPHIGUS [None]
  - PRURITUS GENITAL [None]
